FAERS Safety Report 19679743 (Version 2)
Quarter: 2021Q3

REPORT INFORMATION
  Report Type: Report from Study
  Country: US (occurrence: US)
  Receive Date: 20210810
  Receipt Date: 20210816
  Transmission Date: 20211014
  Serious: Yes (Death, Hospitalization, Other)
  Sender: FDA-Public Use
  Company Number: US-GLAXOSMITHKLINE-US2021AMR118174

PATIENT
  Sex: Male
  Weight: 59.6 kg

DRUGS (1)
  1. BELANTAMAB MAFODOTIN. [Suspect]
     Active Substance: BELANTAMAB MAFODOTIN
     Indication: PRODUCT USED FOR UNKNOWN INDICATION
     Dosage: UNK
     Dates: start: 20210421, end: 20210623

REACTIONS (4)
  - Performance status decreased [Unknown]
  - Keratopathy [Unknown]
  - Dyspnoea [Unknown]
  - Death [Fatal]
